FAERS Safety Report 17017037 (Version 1)
Quarter: 2019Q4

REPORT INFORMATION
  Report Type: Spontaneous
  Country: US (occurrence: US)
  Receive Date: 20191110
  Receipt Date: 20191110
  Transmission Date: 20200122
  Serious: Yes (Other)
  Sender: FDA-Public Use
  Company Number: None

PATIENT
  Age: 35 Year
  Sex: Female
  Weight: 81.65 kg

DRUGS (4)
  1. ANTIHISTAMINE [Concomitant]
     Active Substance: ANTIHISTAMINES NOS
  2. HCTZ [Concomitant]
     Active Substance: HYDROCHLOROTHIAZIDE
  3. ACETAMINOPHEN. [Concomitant]
     Active Substance: ACETAMINOPHEN
  4. EMGALITY [Suspect]
     Active Substance: GALCANEZUMAB-GNLM

REACTIONS (22)
  - Dizziness [None]
  - Palpitations [None]
  - Diplopia [None]
  - Pain [None]
  - Headache [None]
  - Skin indentation [None]
  - Rash [None]
  - Vision blurred [None]
  - Dyspnoea [None]
  - Myalgia [None]
  - Vertigo [None]
  - Paraesthesia [None]
  - Visual impairment [None]
  - Injection site induration [None]
  - Peripheral swelling [None]
  - Blood pressure increased [None]
  - Diarrhoea [None]
  - Hypoaesthesia [None]
  - Fatigue [None]
  - Joint swelling [None]
  - Arthralgia [None]
  - Impaired work ability [None]

NARRATIVE: CASE EVENT DATE: 20191024
